FAERS Safety Report 4681934-X (Version None)
Quarter: 2005Q2

REPORT INFORMATION
  Report Type: 
  Country: None (occurrence: None)
  Receive Date: 20050602
  Receipt Date: 20050523
  Transmission Date: 20051028
  Serious: Yes (Other)
  Sender: FDA-Public Use
  Company Number: 2005065893

PATIENT
  Age: 14 Year
  Sex: Male
  Weight: 43.6 kg

DRUGS (1)
  1. GENOTROPIN [Suspect]
     Indication: DWARFISM
     Dosage: 1.3 MG (1.3 MG, QD), SUBCUTANEOUS
     Route: 058
     Dates: start: 19961011

REACTIONS (1)
  - GLOMERULONEPHRITIS PROLIFERATIVE [None]
